FAERS Safety Report 4311090-9 (Version None)
Quarter: 2004Q1

REPORT INFORMATION
  Report Type: 
  Country: None (occurrence: None)
  Receive Date: 20040302
  Receipt Date: 20040302
  Transmission Date: 20041129
  Serious: Yes (Hospitalization)
  Sender: FDA-Public Use
  Company Number: None

PATIENT
  Age: 74 Year
  Sex: Male
  Weight: 52.2 kg

DRUGS (5)
  1. MORPHINE [Suspect]
  2. IBUPROFEN [Concomitant]
  3. ACETAMINOPHEN W/ CODEINE [Concomitant]
  4. LEVOTHYROXINE SODIUM [Concomitant]
  5. . [Concomitant]

REACTIONS (2)
  - CONSTIPATION [None]
  - VOMITING [None]
